FAERS Safety Report 7287216-4 (Version None)
Quarter: 2011Q1

REPORT INFORMATION
  Report Type: 
  Country: None (occurrence: None)
  Receive Date: 20110211
  Receipt Date: 20110202
  Transmission Date: 20110831
  Serious: Yes (Other)
  Sender: FDA-Public Use
  Company Number: US-ROCHE-758014

PATIENT
  Age: 68 Year
  Sex: Female

DRUGS (7)
  1. ALEVE [Suspect]
     Dosage: DRUG: ALEVE GELCAP (NAPROXEN SODIUM), DOSE AND FREQUENCY: UNSPECIFIED.
     Route: 048
  2. GARLIC [Concomitant]
     Dosage: DRUG NAME: GARLIC OIL
  3. NORVASC [Concomitant]
  4. ATENOLOL [Concomitant]
  5. VITAMIN E [Concomitant]
     Dosage: DRUG NAME: TOCOPHEROL
  6. LISINOPRIL [Concomitant]
  7. GINKGO BILOBA [Concomitant]
     Dosage: DRUG: GINKGO

REACTIONS (1)
  - PETECHIAE [None]
